FAERS Safety Report 23079188 (Version 1)
Quarter: 2023Q4

REPORT INFORMATION
  Report Type: Spontaneous
  Country: CN (occurrence: CN)
  Receive Date: 20231018
  Receipt Date: 20231018
  Transmission Date: 20240109
  Serious: Yes (Other)
  Sender: FDA-Public Use
  Company Number: CN-PFIZER INC-PV202300169289

PATIENT
  Age: 51 Year
  Sex: Male

DRUGS (3)
  1. EPIRUBICIN HYDROCHLORIDE [Suspect]
     Active Substance: EPIRUBICIN HYDROCHLORIDE
     Indication: Hepatic cancer
     Dosage: 20 MG, 1X/DAY
     Dates: start: 20230510, end: 20230510
  2. OXALIPLATIN [Suspect]
     Active Substance: OXALIPLATIN
     Indication: Hepatic cancer
     Dosage: 130 MG, 1X/DAY
     Dates: start: 20230510, end: 20230510
  3. RALTITREXED [Suspect]
     Active Substance: RALTITREXED
     Indication: Hepatic cancer
     Dosage: 3.5 MG, 1X/DAY
     Dates: start: 20230510, end: 20230510

REACTIONS (1)
  - Hepatitis [Recovering/Resolving]

NARRATIVE: CASE EVENT DATE: 20230521
